FAERS Safety Report 4448992-9 (Version None)
Quarter: 2004Q3

REPORT INFORMATION
  Report Type: 
  Country: None (occurrence: None)
  Receive Date: 20040909
  Receipt Date: 20040823
  Transmission Date: 20050211
  Serious: Yes (Hospitalization, Other)
  Sender: FDA-Public Use
  Company Number: USA040671345

PATIENT
  Age: 75 Year
  Sex: Female
  Weight: 50 kg

DRUGS (18)
  1. FORTEO [Suspect]
     Indication: MYASTHENIA GRAVIS
     Dates: start: 20040602
  2. ALPRAZOLAM [Concomitant]
  3. AMBIEN [Concomitant]
  4. CLONAZEPAM [Concomitant]
  5. LEXAPRO [Concomitant]
  6. POTASSIUM [Concomitant]
  7. RISPERDAL [Concomitant]
  8. DILTIAZEM [Concomitant]
  9. SKELAXIN [Concomitant]
  10. SPIRO (SPIRONOLACTONE) [Concomitant]
  11. ULTRACET [Concomitant]
  12. DILANTIN [Concomitant]
  13. NEURONTIN [Concomitant]
  14. PLAVIX [Concomitant]
  15. PREDNISONE [Concomitant]
  16. ATENOLOL [Concomitant]
  17. VITAMIN B-12 [Concomitant]
  18. LACTULOSE [Concomitant]

REACTIONS (1)
  - DIZZINESS [None]
